FAERS Safety Report 11706669 (Version 6)
Quarter: 2016Q1

REPORT INFORMATION
  Report Type: Report from Study
  Country: US (occurrence: US)
  Receive Date: 20151106
  Receipt Date: 20160309
  Transmission Date: 20160525
  Serious: Yes (Death, Hospitalization)
  Sender: FDA-Public Use
  Company Number: US-EISAI MEDICAL RESEARCH-EC-2015-010738

PATIENT
  Age: 65 Year
  Sex: Male
  Weight: 80.7 kg

DRUGS (6)
  1. ERTAPENEM [Concomitant]
     Active Substance: ERTAPENEM
  2. LENVATINIB [Suspect]
     Active Substance: LENVATINIB
     Indication: PAPILLARY THYROID CANCER
     Route: 048
     Dates: start: 20120926, end: 20130129
  3. CIPROFLOXACIN HCL [Concomitant]
     Active Substance: CIPROFLOXACIN HYDROCHLORIDE
  4. SYNTHROID [Concomitant]
     Active Substance: LEVOTHYROXINE SODIUM
  5. LENVATINIB [Suspect]
     Active Substance: LENVATINIB
     Route: 048
     Dates: start: 20130130, end: 20130607
  6. LENVATINIB [Suspect]
     Active Substance: LENVATINIB
     Route: 048
     Dates: start: 20130703, end: 20160130

REACTIONS (5)
  - Vomiting [Recovered/Resolved]
  - Diverticulitis [Recovered/Resolved]
  - Hypokalaemia [Recovered/Resolved]
  - Sepsis [Fatal]
  - Ventricular tachycardia [Not Recovered/Not Resolved]

NARRATIVE: CASE EVENT DATE: 20150921
